FAERS Safety Report 13865293 (Version 1)
Quarter: 2017Q3

REPORT INFORMATION
  Report Type: Spontaneous
  Country: CN (occurrence: CN)
  Receive Date: 20170814
  Receipt Date: 20170814
  Transmission Date: 20171127
  Serious: Yes (Disabling)
  Sender: FDA-Public Use
  Company Number: CN-JNJFOC-20170801030

PATIENT
  Age: 10 Month
  Sex: Female
  Weight: 10 kg

DRUGS (3)
  1. TYLENOL [Suspect]
     Active Substance: ACETAMINOPHEN
     Indication: PYREXIA
     Route: 048
     Dates: start: 20170519, end: 20170522
  2. DEXIBUPROFEN [Suspect]
     Active Substance: DEXIBUPROFEN
     Indication: PYREXIA
     Route: 048
     Dates: start: 20170525, end: 2017
  3. DEXIBUPROFEN [Suspect]
     Active Substance: DEXIBUPROFEN
     Indication: PYREXIA
     Route: 048
     Dates: start: 20170519, end: 20170522

REACTIONS (1)
  - Drug reaction with eosinophilia and systemic symptoms [Recovering/Resolving]

NARRATIVE: CASE EVENT DATE: 20170522
